FAERS Safety Report 8407763-9 (Version None)
Quarter: 2012Q2

REPORT INFORMATION
  Report Type: 
  Country: None (occurrence: None)
  Receive Date: 20120604
  Receipt Date: 20120529
  Transmission Date: 20120825
  Serious: Yes (Hospitalization, Congenital Anomaly)
  Sender: FDA-Public Use
  Company Number: US-GLAXOSMITHKLINE-A0979816A

PATIENT
  Sex: Male

DRUGS (3)
  1. PAXIL [Suspect]
     Indication: PRODUCT USED FOR UNKNOWN INDICATION
     Dosage: 30MG PER DAY
     Route: 064
  2. MS CONTIN [Concomitant]
  3. MORPHINE SULFATE [Concomitant]

REACTIONS (9)
  - FOETAL EXPOSURE DURING PREGNANCY [None]
  - ATTENTION DEFICIT/HYPERACTIVITY DISORDER [None]
  - PAIN IN EXTREMITY [None]
  - DEVELOPMENTAL DELAY [None]
  - AUTISM [None]
  - CAESAREAN SECTION [None]
  - BREECH PRESENTATION [None]
  - TALIPES [None]
  - MATERNAL DRUGS AFFECTING FOETUS [None]
